FAERS Safety Report 4427792-X (Version None)
Quarter: 2004Q3

REPORT INFORMATION
  Report Type: 
  Country: None (occurrence: None)
  Receive Date: 20040812
  Receipt Date: 20040728
  Transmission Date: 20050211
  Serious: Yes (Death)
  Sender: FDA-Public Use
  Company Number: 171818

PATIENT
  Age: 47 Year
  Sex: Female

DRUGS (1)
  1. AVONEX [Suspect]
     Indication: MULTIPLE SCLEROSIS
     Dates: start: 19991201, end: 20010105

REACTIONS (3)
  - DRUG INEFFECTIVE [None]
  - METASTASES TO LIVER [None]
  - PANCREATIC CARCINOMA [None]
